FAERS Safety Report 10678584 (Version 2)
Quarter: 2014Q4

REPORT INFORMATION
  Report Type: Report from Study
  Country: DE (occurrence: DE)
  Receive Date: 20141229
  Receipt Date: 20141229
  Transmission Date: 20150529
  Serious: Yes (Other)
  Sender: FDA-Public Use
  Company Number: DE-EMD SERONO-7337634

PATIENT
  Age: 51 Year
  Sex: Female

DRUGS (1)
  1. REBIF [Suspect]
     Active Substance: INTERFERON BETA-1A
     Indication: MULTIPLE SCLEROSIS
     Route: 058
     Dates: start: 2010, end: 20141206

REACTIONS (7)
  - Skin degenerative disorder [Not Recovered/Not Resolved]
  - Injection site erythema [Not Recovered/Not Resolved]
  - Embolia cutis medicamentosa [Not Recovered/Not Resolved]
  - Injection site induration [Not Recovered/Not Resolved]
  - Blister [Not Recovered/Not Resolved]
  - Scar [Not Recovered/Not Resolved]
  - Injection site ulcer [Not Recovered/Not Resolved]

NARRATIVE: CASE EVENT DATE: 20141118
